FAERS Safety Report 5271464-9 (Version None)
Quarter: 2007Q1

REPORT INFORMATION
  Report Type: 
  Country: None (occurrence: None)
  Receive Date: 20070321
  Receipt Date: 20070315
  Transmission Date: 20070707
  Serious: Yes (Death)
  Sender: FDA-Public Use
  Company Number: NL-SHR-NL-2005-004728

PATIENT
  Age: 26 Year
  Sex: Male

DRUGS (4)
  1. CAMPATH [Suspect]
     Indication: T-CELL LYMPHOMA
     Dosage: 3 MG, 1 DOSE
     Route: 058
     Dates: start: 20050524, end: 20050524
  2. CYCLOPHOSPHAMIDE W/VINCRISTINE/PREDNISONE [Concomitant]
     Indication: T-CELL LYMPHOMA
  3. DOXORUBICIN HCL [Concomitant]
     Indication: T-CELL LYMPHOMA
  4. ALLOPURINOL [Concomitant]

REACTIONS (3)
  - ACUTE RESPIRATORY DISTRESS SYNDROME [None]
  - MULTI-ORGAN FAILURE [None]
  - TUMOUR LYSIS SYNDROME [None]
